FAERS Safety Report 6376362-5 (Version None)
Quarter: 2009Q3

REPORT INFORMATION
  Report Type: 
  Country: None (occurrence: None)
  Receive Date: 20090925
  Receipt Date: 20090918
  Transmission Date: 20100115
  Serious: Yes (Other)
  Sender: FDA-Public Use
  Company Number: IN-ALLERGAN-0810938US

PATIENT
  Age: 3 Year
  Sex: Male

DRUGS (1)
  1. CYCLOPENTOLATE HCL 1.0% SOL [Suspect]
     Indication: OPHTHALMOLOGICAL EXAMINATION
     Dosage: 2 GTT, SINGLE
     Route: 047

REACTIONS (6)
  - ABNORMAL BEHAVIOUR [None]
  - CYCLOPLEGIA [None]
  - ERYTHEMA [None]
  - HEART RATE INCREASED [None]
  - PYREXIA [None]
  - SPEECH DISORDER [None]
